FAERS Safety Report 8890571 (Version 1)
Quarter: 2012Q4

REPORT INFORMATION
  Report Type: 
  Country: FR (occurrence: FR)
  Receive Date: 20121106
  Receipt Date: 20121106
  Transmission Date: 20130627
  Serious: Yes (Hospitalization, Other)
  Sender: FDA-Public Use
  Company Number: FR-WATSON-2012-18669

PATIENT
  Age: 46 Year
  Sex: Male

DRUGS (2)
  1. BACLOFEN [Suspect]
     Indication: ALCOHOLISM
     Dosage: 240 mg, daily
     Route: 065
  2. ALCOHOL [Concomitant]
     Indication: ALCOHOLISM
     Dosage: 160 g, daily
     Route: 048

REACTIONS (3)
  - Grand mal convulsion [Recovered/Resolved]
  - Drug interaction [Recovered/Resolved]
  - Drug ineffective [Not Recovered/Not Resolved]
